FAERS Safety Report 24418248 (Version 1)
Quarter: 2024Q4

REPORT INFORMATION
  Report Type: Spontaneous
  Country: US (occurrence: US)
  Receive Date: 20241009
  Receipt Date: 20241009
  Transmission Date: 20250115
  Serious: No
  Sender: TEVA
  Company Number: US-TEVA-VS-3245701

PATIENT
  Age: 48 Year
  Sex: Female

DRUGS (1)
  1. CLONIDINE [Suspect]
     Active Substance: CLONIDINE
     Indication: Hypertension
     Dosage: 0.3 MG/24HR
     Route: 062

REACTIONS (4)
  - Blood pressure fluctuation [Unknown]
  - Product adhesion issue [Unknown]
  - Incorrect dose administered [Unknown]
  - Product quality issue [Unknown]
